FAERS Safety Report 25547869 (Version 1)
Quarter: 2025Q3

REPORT INFORMATION
  Report Type: Report from Study
  Country: ZA (occurrence: ZA)
  Receive Date: 20250714
  Receipt Date: 20250714
  Transmission Date: 20251021
  Serious: Yes (Hospitalization, Other)
  Sender: EMD SERONO INC
  Company Number: ZA-Merck Healthcare KGaA-2025034467

PATIENT
  Age: 28 Year
  Sex: Male

DRUGS (1)
  1. MAVENCLAD [Suspect]
     Active Substance: CLADRIBINE
     Indication: Multiple sclerosis

REACTIONS (4)
  - Cystitis [Unknown]
  - Nausea [Unknown]
  - Abdominal pain [Unknown]
  - Testicular swelling [Unknown]

NARRATIVE: CASE EVENT DATE: 20250704
